FAERS Safety Report 14394182 (Version 1)
Quarter: 2018Q1

REPORT INFORMATION
  Report Type: Spontaneous
  Country: FR (occurrence: FR)
  Receive Date: 20180116
  Receipt Date: 20180116
  Transmission Date: 20180509
  Serious: Yes (Other)
  Sender: FDA-Public Use
  Company Number: FR-TEVA-2018-FR-843478

PATIENT
  Age: 58 Year
  Sex: Male
  Weight: 101 kg

DRUGS (1)
  1. CISPLATINE [Suspect]
     Active Substance: CISPLATIN
     Indication: NEOPLASM MALIGNANT
     Dosage: IN ONE HOUR
     Route: 042
     Dates: start: 201708

REACTIONS (1)
  - Auditory disorder [Not Recovered/Not Resolved]

NARRATIVE: CASE EVENT DATE: 201709
